FAERS Safety Report 4912891-6 (Version None)
Quarter: 2006Q1

REPORT INFORMATION
  Report Type: 
  Country: None (occurrence: None)
  Receive Date: 20060215
  Receipt Date: 20060207
  Transmission Date: 20060701
  Serious: Yes (Other)
  Sender: FDA-Public Use
  Company Number: PHBS2006BE02028

PATIENT
  Age: 44 Year
  Sex: Female

DRUGS (9)
  1. TRILEPTAL [Suspect]
     Indication: SIMPLE PARTIAL SEIZURES
     Dosage: INCREASED TO 900 MG/D OVER 8 WKS
     Route: 048
     Dates: start: 20050908
  2. TRILEPTAL [Suspect]
     Dosage: 1200 MG/DAY
     Route: 048
     Dates: start: 20051110
  3. DEPAKENE [Concomitant]
     Route: 065
  4. DEPAKENE [Concomitant]
     Dosage: 1800 MG/DAY
     Route: 065
     Dates: start: 20050908
  5. DEPAKENE [Concomitant]
     Dosage: 1500 MG/DAY
     Route: 065
     Dates: start: 20051110
  6. KEPPRA [Concomitant]
     Dosage: 4000 MG/DAY
     Dates: end: 20050908
  7. KEPPRA [Concomitant]
     Dosage: 3000 MG/DAY
     Route: 065
  8. KEPPRA [Concomitant]
     Dosage: 3500 MG/DAY
     Route: 065
     Dates: start: 20051110
  9. FOLIC ACID [Concomitant]
     Route: 065
     Dates: start: 20050908

REACTIONS (19)
  - ABDOMINAL SYMPTOM [None]
  - ANISOCYTOSIS [None]
  - ANTICONVULSANT DRUG LEVEL INCREASED [None]
  - CONDITION AGGRAVATED [None]
  - CONVULSION [None]
  - DECREASED APPETITE [None]
  - DEPRESSION [None]
  - EOSINOPHIL COUNT DECREASED [None]
  - EOSINOPHIL PERCENTAGE DECREASED [None]
  - FATIGUE [None]
  - HAEMOGLOBIN DECREASED [None]
  - LEUKOPENIA [None]
  - MACROCYTOSIS [None]
  - MEAN CELL HAEMOGLOBIN INCREASED [None]
  - MEAN CELL VOLUME INCREASED [None]
  - NEUTROPHIL COUNT DECREASED [None]
  - PANCYTOPENIA [None]
  - PLATELET COUNT DECREASED [None]
  - RED BLOOD CELL COUNT DECREASED [None]
